FAERS Safety Report 5878261-1 (Version None)
Quarter: 2008Q3

REPORT INFORMATION
  Report Type: 
  Country: None (occurrence: None)
  Receive Date: 20080911
  Receipt Date: 20080902
  Transmission Date: 20090109
  Serious: Yes (Other)
  Sender: FDA-Public Use
  Company Number: AU-PFIZER INC-2008045164

PATIENT
  Sex: Male

DRUGS (8)
  1. MINIPRESS [Suspect]
     Route: 048
     Dates: start: 20080521
  2. INSULIN [Concomitant]
     Indication: DIABETES MELLITUS
  3. CLOPIDOGREL [Concomitant]
  4. LASIX [Concomitant]
  5. COVERSYL [Concomitant]
  6. BISOPROLOL FUMARATE [Concomitant]
  7. ASPIRIN [Concomitant]
  8. IRBESARTAN [Concomitant]

REACTIONS (1)
  - HYPOGLYCAEMIA [None]
